FAERS Safety Report 9088283 (Version 1)
Quarter: 2013Q1

REPORT INFORMATION
  Report Type: Spontaneous
  Country: US (occurrence: US)
  Receive Date: 20130218
  Receipt Date: 20130218
  Transmission Date: 20140127
  Serious: No
  Sender: FDA-Public Use
  Company Number: US-ABBOTT-12P-163-0998679-00

PATIENT
  Sex: Female
  Weight: 77.18 kg

DRUGS (9)
  1. SIMCOR 500/40 [Suspect]
     Indication: BLOOD CHOLESTEROL
     Dosage: 500/40 MG
     Route: 048
     Dates: start: 20120912
  2. SIMCOR 500/40 [Suspect]
     Indication: BLOOD CHOLESTEROL
  3. ESTROGEN PATCH (NON-ABBOTT) [Concomitant]
     Indication: HYSTERECTOMY
  4. TOPAMAX [Concomitant]
     Indication: MIGRAINE
  5. WELLBUTRIN [Concomitant]
     Indication: DEPRESSION
  6. WELLBUTRIN [Concomitant]
     Indication: ANXIETY
  7. XANAX (NON-ABBOTT) [Concomitant]
     Indication: ANXIETY
  8. VITAMIN D (NON-ABBOTT) [Concomitant]
     Indication: VITAMIN SUPPLEMENTATION
  9. ADDERALL [Concomitant]
     Indication: FATIGUE

REACTIONS (10)
  - Influenza [Not Recovered/Not Resolved]
  - Feeling hot [Not Recovered/Not Resolved]
  - Pyrexia [Not Recovered/Not Resolved]
  - Erythema [Not Recovered/Not Resolved]
  - Dry throat [Not Recovered/Not Resolved]
  - Anxiety [Not Recovered/Not Resolved]
  - Palpitations [Not Recovered/Not Resolved]
  - Heart rate increased [Not Recovered/Not Resolved]
  - Nausea [Not Recovered/Not Resolved]
  - Hypertension [Not Recovered/Not Resolved]
